FAERS Safety Report 19239724 (Version 2)
Quarter: 2021Q3

REPORT INFORMATION
  Report Type: Spontaneous
  Country: US (occurrence: US)
  Receive Date: 20210511
  Receipt Date: 20210702
  Transmission Date: 20211014
  Serious: Yes (Hospitalization)
  Sender: FDA-Public Use
  Company Number: US-SPECGX-T202101127

PATIENT
  Age: 11 Month
  Sex: Female

DRUGS (1)
  1. OXYCODONE [Suspect]
     Active Substance: OXYCODONE
     Indication: PRODUCT USED FOR UNKNOWN INDICATION
     Dosage: UNK
     Route: 048

REACTIONS (8)
  - Lipase increased [Recovering/Resolving]
  - Lethargy [Recovering/Resolving]
  - Amylase increased [Recovering/Resolving]
  - Somnolence [Recovering/Resolving]
  - Sphincter of Oddi dysfunction [Recovering/Resolving]
  - Accidental exposure to product by child [Unknown]
  - Hypophagia [Recovering/Resolving]
  - Mental status changes [Recovering/Resolving]
